FAERS Safety Report 4398918-1 (Version None)
Quarter: 2004Q3

REPORT INFORMATION
  Report Type: 
  Country: None (occurrence: None)
  Receive Date: 20040712
  Receipt Date: 20040615
  Transmission Date: 20050211
  Serious: Yes (Death, Hospitalization)
  Sender: FDA-Public Use
  Company Number: WAES 0405USA01696

PATIENT
  Age: 78 Year
  Sex: Male

DRUGS (2)
  1. PRIMAXIN [Suspect]
     Indication: ACUTE TONSILLITIS
     Dosage: 0.5 GM/BID IV
     Route: 042
     Dates: start: 20040511, end: 20040512
  2. CEFOZOPRAN HCI [Concomitant]

REACTIONS (6)
  - BLOOD SODIUM DECREASED [None]
  - HEPATIC FAILURE [None]
  - HEPATITIS FULMINANT [None]
  - PLASMAPHERESIS [None]
  - PLATELET COUNT DECREASED [None]
  - RESPIRATORY DISORDER [None]
